FAERS Safety Report 9887495 (Version 1)
Quarter: 2014Q1

REPORT INFORMATION
  Report Type: Spontaneous
  Country: UA (occurrence: None)
  Receive Date: 20140206
  Receipt Date: 20140206
  Transmission Date: 20141002
  Serious: Yes (Hospitalization)
  Sender: FDA-Public Use
  Company Number: 1401UKR013095

PATIENT
  Age: 15 Year
  Sex: Female

DRUGS (2)
  1. CEDAX (CEFTIBUTEN) CAPSULE, 400MG [Suspect]
     Indication: PNEUMONIA
     Route: 048
     Dates: start: 20131231, end: 20140104
  2. CEFTRIAXONE SODIUM [Suspect]
     Indication: PNEUMONIA
     Route: 030
     Dates: start: 20131230

REACTIONS (2)
  - Constipation [None]
  - Dysgeusia [None]
